FAERS Safety Report 22355027 (Version 1)
Quarter: 2023Q2

REPORT INFORMATION
  Report Type: Spontaneous
  Country: US (occurrence: US)
  Receive Date: 20230523
  Receipt Date: 20230523
  Transmission Date: 20230722
  Serious: Yes (Hospitalization, Other)
  Sender: FDA-Public Use
  Company Number: US-INCYTE CORPORATION-2023IN005232

PATIENT

DRUGS (8)
  1. JAKAFI [Suspect]
     Active Substance: RUXOLITINIB
     Indication: Graft versus host disease in lung
     Dosage: UNK
     Route: 065
     Dates: start: 202101
  2. JAKAFI [Suspect]
     Active Substance: RUXOLITINIB
     Dosage: INCREASED DOSE
     Route: 065
     Dates: start: 202103, end: 20230315
  3. FAM [Concomitant]
     Indication: Graft versus host disease in lung
     Dosage: UNK
     Route: 065
     Dates: start: 202101
  4. SINGULAIR [Concomitant]
     Active Substance: MONTELUKAST SODIUM
     Indication: Graft versus host disease in lung
     Dosage: UNK
     Route: 065
  5. TRELEGY ELLIPTA [Concomitant]
     Active Substance: FLUTICASONE FUROATE\UMECLIDINIUM BROMIDE\VILANTEROL TRIFENATATE
     Indication: Graft versus host disease in lung
     Dosage: UNK
     Route: 065
  6. REZUROCK [Concomitant]
     Active Substance: BELUMOSUDIL
     Indication: Graft versus host disease in lung
     Dosage: UNK
     Route: 065
     Dates: start: 202108
  7. MEDROL [Concomitant]
     Active Substance: METHYLPREDNISOLONE
     Dosage: UNK
     Dates: start: 202010
  8. BUDESONIDE [Concomitant]
     Active Substance: BUDESONIDE
     Indication: Product used for unknown indication
     Dosage: UNK
     Route: 065
     Dates: start: 202208

REACTIONS (5)
  - Lung disorder [Not Recovered/Not Resolved]
  - Scedosporium infection [Unknown]
  - Fungal infection [Unknown]
  - Dyspnoea at rest [Not Recovered/Not Resolved]
  - Oxygen consumption increased [Unknown]
